FAERS Safety Report 23288602 (Version 1)
Quarter: 2023Q4

REPORT INFORMATION
  Report Type: Spontaneous
  Country: US (occurrence: None)
  Receive Date: 20231211
  Receipt Date: 20231211
  Transmission Date: 20240110
  Serious: No
  Sender: FDA-Public Use
  Company Number: None

PATIENT
  Sex: 0

DRUGS (1)
  1. FOCALIN XR [Suspect]
     Active Substance: DEXMETHYLPHENIDATE HYDROCHLORIDE

REACTIONS (6)
  - Aggression [None]
  - Cognitive disorder [None]
  - Abnormal behaviour [None]
  - Psychomotor hyperactivity [None]
  - Decreased activity [None]
  - Stereotypy [None]
